FAERS Safety Report 12201665 (Version 1)
Quarter: 2016Q1

REPORT INFORMATION
  Report Type: Spontaneous
  Country: US (occurrence: US)
  Receive Date: 20160322
  Receipt Date: 20160322
  Transmission Date: 20160526
  Serious: Yes (Other)
  Sender: FDA-Public Use
  Company Number: US-INSYS THERAPEUTICS, INC-INS201603-000110

PATIENT
  Age: 54 Year
  Sex: Female
  Weight: 79.37 kg

DRUGS (4)
  1. OXYCONTIN [Concomitant]
     Active Substance: OXYCODONE HYDROCHLORIDE
     Indication: NEURALGIA
  2. SUBSYS [Suspect]
     Active Substance: FENTANYL
     Indication: BREAKTHROUGH PAIN
  3. GRALISE [Concomitant]
     Active Substance: GABAPENTIN
     Indication: NEURALGIA
  4. SUBSYS [Suspect]
     Active Substance: FENTANYL
     Indication: NEURALGIA
     Route: 060

REACTIONS (2)
  - Anal cancer [Unknown]
  - Rectal cancer [Unknown]

NARRATIVE: CASE EVENT DATE: 201506
